FAERS Safety Report 6071399-8 (Version None)
Quarter: 2009Q1

REPORT INFORMATION
  Report Type: 
  Country: None (occurrence: None)
  Receive Date: 20090129
  Receipt Date: 20090119
  Transmission Date: 20090719
  Serious: Yes (Other)
  Sender: FDA-Public Use
  Company Number: AEUSA200900011

PATIENT
  Sex: Female

DRUGS (1)
  1. GAMUNEX [Suspect]
     Indication: GUILLAIN-BARRE SYNDROME
     Dosage: 40 GM;QD;IV
     Route: 042
     Dates: start: 20090115, end: 20090119

REACTIONS (1)
  - HYPONATRAEMIA [None]
